FAERS Safety Report 8904301 (Version 1)
Quarter: 2012Q4

REPORT INFORMATION
  Report Type: 
  Country: FR (occurrence: FR)
  Receive Date: 20121112
  Receipt Date: 20121112
  Transmission Date: 20130627
  Serious: Yes (Hospitalization)
  Sender: FDA-Public Use
  Company Number: FR-GLAXOSMITHKLINE-B0841961A

PATIENT
  Age: 73 None
  Sex: Female

DRUGS (10)
  1. CLAMOXYL [Suspect]
     Indication: BRONCHITIS
     Dosage: 2UNIT cumulative dose
     Route: 048
     Dates: start: 201205, end: 201205
  2. ZELITREX [Suspect]
     Indication: PRODUCT USED FOR UNKNOWN INDICATION
     Dosage: 500MG Twice per day
     Route: 048
     Dates: end: 20120621
  3. TRIATEC [Suspect]
     Indication: HYPERTENSION
     Dosage: 5MG Twice per day
     Route: 048
     Dates: end: 20120625
  4. MABTHERA [Suspect]
     Indication: EXTRANODAL MARGINAL ZONE B-CELL LYMPHOMA (MALT TYPE)
     Route: 042
     Dates: start: 20110915, end: 20120117
  5. CHLORAMINOPHENE [Concomitant]
     Indication: EXTRANODAL MARGINAL ZONE B-CELL LYMPHOMA (MALT TYPE)
  6. ATENOLOL [Concomitant]
     Dosage: 50MG per day
  7. CARTEOL [Concomitant]
     Route: 047
  8. ARTELAC [Concomitant]
     Route: 001
  9. DEXAMETHASONE EYE DROPS [Concomitant]
     Route: 001
  10. TARDYFERON [Concomitant]
     Dates: start: 201206

REACTIONS (3)
  - Leukopenia [Not Recovered/Not Resolved]
  - Anaemia [Not Recovered/Not Resolved]
  - Pyrexia [Recovered/Resolved]
